FAERS Safety Report 5936897-3 (Version None)
Quarter: 2008Q4

REPORT INFORMATION
  Report Type: 
  Country: None (occurrence: None)
  Receive Date: 20081031
  Receipt Date: 20081021
  Transmission Date: 20090506
  Serious: Yes (Hospitalization, Other)
  Sender: FDA-Public Use
  Company Number: GB-JNJFOC-20080906460

PATIENT
  Age: 63 Year
  Sex: Male
  Weight: 97 kg

DRUGS (14)
  1. REMICADE [Suspect]
     Indication: RHEUMATOID ARTHRITIS
     Route: 042
  2. SULFASALAZINE [Concomitant]
  3. METHOTREXATE [Concomitant]
  4. PREDNISOLONE [Concomitant]
  5. ASPIRIN [Concomitant]
  6. ATENOLOL [Concomitant]
  7. FERROUS SULFATE TAB [Concomitant]
  8. FOLIC ACID [Concomitant]
  9. FOSAMAX [Concomitant]
  10. IBUPROFEN [Concomitant]
  11. LANSOPRAZOLE [Concomitant]
  12. METFORMIN HYDROCHLORIDE [Concomitant]
  13. RAMIPRIL [Concomitant]
  14. SIMVASTATIN [Concomitant]

REACTIONS (4)
  - IMPLANT SITE CELLULITIS [None]
  - KNEE ARTHROPLASTY [None]
  - PULMONARY EMBOLISM [None]
  - THROMBOSIS [None]
